FAERS Safety Report 6592712-9 (Version None)
Quarter: 2010Q1

REPORT INFORMATION
  Report Type: 
  Country: None (occurrence: None)
  Receive Date: 20100212
  Receipt Date: 20100126
  Transmission Date: 20100710
  Serious: Yes (Hospitalization)
  Sender: FDA-Public Use
  Company Number: MC200900407

PATIENT
  Age: 66 Year
  Sex: Male
  Weight: 80 kg

DRUGS (20)
  1. ANGIOMAX [Suspect]
     Indication: PERCUTANEOUS CORONARY INTERVENTION
     Dosage: 12 ML BOLUS, IV BOLUS; 28 ML, HR, INTRAVENOUS; 4 ML, HR, INTRAVENOUS
     Route: 040
     Dates: start: 20090906, end: 20090906
  2. ANGIOMAX [Suspect]
     Indication: PERCUTANEOUS CORONARY INTERVENTION
     Dosage: 12 ML BOLUS, IV BOLUS; 28 ML, HR, INTRAVENOUS; 4 ML, HR, INTRAVENOUS
     Route: 040
     Dates: start: 20090906, end: 20090906
  3. ANGIOMAX [Suspect]
     Indication: PERCUTANEOUS CORONARY INTERVENTION
     Dosage: 12 ML BOLUS, IV BOLUS; 28 ML, HR, INTRAVENOUS; 4 ML, HR, INTRAVENOUS
     Route: 040
     Dates: start: 20090906, end: 20090906
  4. RAMIPRIL [Concomitant]
  5. RAMIPRIL [Concomitant]
  6. SIMVASTATIN [Concomitant]
  7. DIGITOXIN INJ [Concomitant]
  8. EBRANTIL (URAPIDIL) [Concomitant]
  9. ENOXAPARIN SODIUM [Concomitant]
  10. METOPROLOL (METOPROLOL) [Concomitant]
  11. EPLERENONE (EPLERENONE) [Concomitant]
  12. AMIODARON (AMIODARONE HYDROCHLORIDE) [Concomitant]
  13. BISPROLOL (BISPROLOL HEMIFUMARATE) [Concomitant]
  14. MOXONIDIN (MOXONIDIN) [Concomitant]
  15. LERSADIPIN (LERCANIDIPINE) [Concomitant]
  16. CLOPIDOGREL [Concomitant]
  17. ASPIRIN [Concomitant]
  18. TORSEMIDE [Concomitant]
  19. DORMICUM (MIDAZOLAM MELEATE) [Concomitant]
  20. ETOMIDATE [Concomitant]

REACTIONS (2)
  - NO THERAPEUTIC RESPONSE [None]
  - VASCULAR PSEUDOANEURYSM [None]
